FAERS Safety Report 10269010 (Version 2)
Quarter: 2014Q3

REPORT INFORMATION
  Report Type: Spontaneous
  Country: US (occurrence: US)
  Receive Date: 20140630
  Receipt Date: 20140826
  Transmission Date: 20150326
  Serious: Yes (Other)
  Sender: FDA-Public Use
  Company Number: US-GILEAD-2014-0106795

PATIENT
  Age: 78 Year
  Sex: Male

DRUGS (10)
  1. LEVOTHYROXINE SODIUM. [Concomitant]
     Active Substance: LEVOTHYROXINE SODIUM
  2. OMEGA Q PLUS RESVERATROL [Concomitant]
  3. MAGNESIUM OXIDE. [Concomitant]
     Active Substance: MAGNESIUM OXIDE
  4. DIMETHYL SULFONE\GLUCOSAMINE SULFATE [Concomitant]
     Active Substance: DIMETHYL SULFONE\GLUCOSAMINE SULFATE
  5. COENZYME Q10 [Concomitant]
     Active Substance: UBIDECARENONE
  6. XARELTO [Concomitant]
     Active Substance: RIVAROXABAN
  7. ATORVASTATIN [Concomitant]
     Active Substance: ATORVASTATIN
  8. RANEXA [Suspect]
     Active Substance: RANOLAZINE
     Indication: ANGINA PECTORIS
     Dosage: 250 MG, QD
     Route: 065
     Dates: start: 2008
  9. COZAAR [Concomitant]
     Active Substance: LOSARTAN POTASSIUM
  10. OMEGA Q PLUS RESVERATROL [Concomitant]

REACTIONS (3)
  - Cardiac pacemaker insertion [Recovered/Resolved]
  - Sick sinus syndrome [Unknown]
  - Intentional product misuse [Unknown]

NARRATIVE: CASE EVENT DATE: 20140624
